FAERS Safety Report 4344400-7 (Version None)
Quarter: 2004Q2

REPORT INFORMATION
  Report Type: 
  Country: None (occurrence: None)
  Receive Date: 20040419
  Receipt Date: 20040405
  Transmission Date: 20050107
  Serious: Yes (Other)
  Sender: FDA-Public Use
  Company Number: 235835

PATIENT
  Age: 11 Year
  Sex: Female
  Weight: 25 kg

DRUGS (3)
  1. NORDITROPIN SIMPLEXX(SOMATROPIN) SOLUTION FOR INJECTION, 3.3 MG/ML [Suspect]
     Indication: GROWTH HORMONE DEFICIENCY
     Dosage: 0.4 MG, SUBCUTANEOUS
     Route: 058
     Dates: start: 20030903
  2. ETALPHA (ALFACALCIDOL) [Concomitant]
  3. UNIKALK [Concomitant]

REACTIONS (3)
  - EXANTHEM [None]
  - HEADACHE [None]
  - PRURITUS [None]
